FAERS Safety Report 7634597-5 (Version None)
Quarter: 2011Q3

REPORT INFORMATION
  Report Type: 
  Country: None (occurrence: None)
  Receive Date: 20110725
  Receipt Date: 20100607
  Transmission Date: 20111222
  Serious: Yes (Death, Hospitalization, Other)
  Sender: FDA-Public Use
  Company Number: US-AMGEN-QUU396074

PATIENT
  Age: 77 Year
  Sex: Male
  Weight: 70 kg

DRUGS (6)
  1. PEMETREXED DISODIUM [Concomitant]
     Dosage: UNK UNK, UNK
     Dates: start: 20091103, end: 20091124
  2. DEXAMETHASONE [Concomitant]
  3. NPLATE [Suspect]
     Indication: IDIOPATHIC THROMBOCYTOPENIC PURPURA
     Dosage: 210 A?G, QWK
     Route: 058
     Dates: start: 20081021, end: 20091110
  4. FOLATE SODIUM [Concomitant]
  5. CYANOCOBALAMIN [Concomitant]
     Dosage: UNK UNK, UNK
     Dates: start: 20091006
  6. BEVACIZUMAB [Concomitant]
     Dosage: UNK UNK, UNK
     Dates: start: 20091103, end: 20091124

REACTIONS (5)
  - DISEASE PROGRESSION [None]
  - IDIOPATHIC THROMBOCYTOPENIC PURPURA [None]
  - PNEUMONIA [None]
  - LUNG ADENOCARCINOMA METASTATIC [None]
  - PERFORMANCE STATUS DECREASED [None]
